FAERS Safety Report 13701725 (Version 1)
Quarter: 2017Q2

REPORT INFORMATION
  Report Type: Spontaneous
  Country: US (occurrence: US)
  Receive Date: 20170629
  Receipt Date: 20170629
  Transmission Date: 20170830
  Serious: No
  Sender: FDA-Public Use
  Company Number: US-SUN PHARMACEUTICAL INDUSTRIES LTD-2017US-141020

PATIENT
  Age: 69 Year
  Sex: Female

DRUGS (1)
  1. IMATINIB [Suspect]
     Active Substance: IMATINIB
     Indication: GASTROINTESTINAL STROMAL TUMOUR
     Dosage: 1 DF, DAILY
     Route: 048
     Dates: start: 20160716, end: 20170407

REACTIONS (4)
  - Product substitution issue [Unknown]
  - Accidental exposure to product [Unknown]
  - Dysgeusia [Unknown]
  - Product physical issue [Unknown]
